FAERS Safety Report 10376175 (Version 1)
Quarter: 2014Q3

REPORT INFORMATION
  Report Type: Spontaneous
  Country: US (occurrence: US)
  Receive Date: 20140811
  Receipt Date: 20140811
  Transmission Date: 20150326
  Serious: No
  Sender: FDA-Public Use
  Company Number: US-ASTRAZENECA-2013SE66757

PATIENT
  Sex: Female

DRUGS (9)
  1. AMBIEN [Concomitant]
     Active Substance: ZOLPIDEM TARTRATE
  2. MOBIC [Concomitant]
     Active Substance: MELOXICAM
  3. METOPROLOL TARTRATE. [Concomitant]
     Active Substance: METOPROLOL TARTRATE
  4. SIMVISTATIN [Concomitant]
     Active Substance: SIMVASTATIN
  5. PROTONIX [Concomitant]
     Active Substance: PANTOPRAZOLE SODIUM
  6. LORTAB [Concomitant]
     Active Substance: ACETAMINOPHEN\HYDROCODONE BITARTRATE
  7. MECLIZINE [Concomitant]
     Active Substance: MECLIZINE\MECLIZINE HYDROCHLORIDE
  8. MVI [Concomitant]
     Active Substance: VITAMINS
  9. ARIMIDEX [Suspect]
     Active Substance: ANASTROZOLE
     Dosage: HS
     Route: 048

REACTIONS (2)
  - Hypersensitivity [Unknown]
  - Adverse reaction [Unknown]
